FAERS Safety Report 18257995 (Version 3)
Quarter: 2021Q3

REPORT INFORMATION
  Report Type: Report from Study
  Country: CO (occurrence: CO)
  Receive Date: 20200911
  Receipt Date: 20210817
  Transmission Date: 20211014
  Serious: Yes (Life-Threatening, Hospitalization, Other)
  Sender: FDA-Public Use
  Company Number: NVSC2020CO207191

PATIENT
  Age: 8 Year
  Sex: Female
  Weight: 29 kg

DRUGS (4)
  1. REVOLADE [Suspect]
     Active Substance: ELTROMBOPAG OLAMINE
     Dosage: 50 MG, QD (25 MG ONE DAY AND THE FOLLOWING DAY 50 MG)
     Route: 048
  2. REVOLADE [Suspect]
     Active Substance: ELTROMBOPAG OLAMINE
     Dosage: 50 MG, QD (4 MONTHS AGO)
     Route: 048
  3. REVOLADE [Suspect]
     Active Substance: ELTROMBOPAG OLAMINE
     Indication: IMMUNE THROMBOCYTOPENIA
     Dosage: 25 MG, QD
     Route: 048
     Dates: start: 202003
  4. REVOLADE [Suspect]
     Active Substance: ELTROMBOPAG OLAMINE
     Dosage: UNK
     Route: 048
     Dates: start: 202006

REACTIONS (8)
  - Epistaxis [Unknown]
  - Dental caries [Unknown]
  - Headache [Unknown]
  - Fatigue [Recovering/Resolving]
  - Illness [Unknown]
  - Platelet count decreased [Recovered/Resolved]
  - Contusion [Unknown]
  - Pyrexia [Unknown]

NARRATIVE: CASE EVENT DATE: 202008
